FAERS Safety Report 18157717 (Version 3)
Quarter: 2021Q1

REPORT INFORMATION
  Report Type: Spontaneous
  Country: US (occurrence: US)
  Receive Date: 20200817
  Receipt Date: 20210330
  Transmission Date: 20210419
  Serious: Yes (Other)
  Sender: FDA-Public Use
  Company Number: US-GILEAD-2020-0489620

PATIENT
  Age: 34 Year
  Sex: Female
  Weight: 86.17 kg

DRUGS (33)
  1. VIREAD [Suspect]
     Active Substance: TENOFOVIR DISOPROXIL FUMARATE
     Dosage: UNK
     Route: 048
     Dates: start: 20120113, end: 20120323
  2. TRUVADA [Suspect]
     Active Substance: EMTRICITABINE\TENOFOVIR DISOPROXIL FUMARATE
     Indication: HIV INFECTION
     Dosage: UNK
     Route: 048
     Dates: start: 201203, end: 201610
  3. LORAZEPAM. [Concomitant]
     Active Substance: LORAZEPAM
  4. CLONIDINE. [Concomitant]
     Active Substance: CLONIDINE
  5. COLACE [Concomitant]
     Active Substance: DOCUSATE SODIUM
  6. FERROUS SULFATE. [Concomitant]
     Active Substance: FERROUS SULFATE
  7. HYDROXYZINE PAMOATE. [Concomitant]
     Active Substance: HYDROXYZINE PAMOATE
  8. IBUPROFEN. [Concomitant]
     Active Substance: IBUPROFEN
  9. RITONAVIR. [Concomitant]
     Active Substance: RITONAVIR
  10. ASPIRIN (E.C.) [Concomitant]
     Active Substance: ASPIRIN
  11. BUPRENORPHINE/NALOXONE [Concomitant]
     Active Substance: BUPRENORPHINE\NALOXONE
  12. PREZISTA [Concomitant]
     Active Substance: DARUNAVIR ETHANOLATE
  13. METRONIDAZOLE. [Concomitant]
     Active Substance: METRONIDAZOLE
  14. VIREAD [Suspect]
     Active Substance: TENOFOVIR DISOPROXIL FUMARATE
     Indication: HIV INFECTION
     Dosage: UNK
     Route: 048
     Dates: start: 20120113, end: 20120625
  15. TRUVADA [Suspect]
     Active Substance: EMTRICITABINE\TENOFOVIR DISOPROXIL FUMARATE
     Dosage: UNK
     Route: 048
     Dates: start: 201106, end: 201112
  16. DESCOVY [Concomitant]
     Active Substance: EMTRICITABINE\TENOFOVIR ALAFENAMIDE FUMARATE
  17. VANCOMYCIN [Concomitant]
     Active Substance: VANCOMYCIN
  18. BUSPAR [Concomitant]
     Active Substance: BUSPIRONE HYDROCHLORIDE
  19. DEPO?PROVERA [Concomitant]
     Active Substance: MEDROXYPROGESTERONE ACETATE
  20. OXYCODONE HYDROCHLORIDE. [Concomitant]
     Active Substance: OXYCODONE HYDROCHLORIDE
  21. CELEBREX [Concomitant]
     Active Substance: CELECOXIB
  22. TRUVADA [Suspect]
     Active Substance: EMTRICITABINE\TENOFOVIR DISOPROXIL FUMARATE
     Dosage: UNK
     Route: 048
     Dates: start: 20180627, end: 20180827
  23. NORVIR [Concomitant]
     Active Substance: RITONAVIR
  24. LORTAB [LORATADINE] [Concomitant]
     Active Substance: LORATADINE
  25. TRUVADA [Suspect]
     Active Substance: EMTRICITABINE\TENOFOVIR DISOPROXIL FUMARATE
     Dosage: UNK
     Route: 048
     Dates: start: 20161107, end: 20171112
  26. TRUVADA [Suspect]
     Active Substance: EMTRICITABINE\TENOFOVIR DISOPROXIL FUMARATE
     Dosage: UNK
     Route: 048
     Dates: start: 20171212, end: 20180827
  27. PREZCOBIX [Concomitant]
     Active Substance: COBICISTAT\DARUNAVIR ETHANOLATE
  28. GABAPENTIN. [Concomitant]
     Active Substance: GABAPENTIN
  29. AMBIEN [Concomitant]
     Active Substance: ZOLPIDEM TARTRATE
  30. BUPRENORPHINE. [Concomitant]
     Active Substance: BUPRENORPHINE
  31. ECOTRIN [Concomitant]
     Active Substance: ASPIRIN
  32. METHOCARBAMOL. [Concomitant]
     Active Substance: METHOCARBAMOL
  33. TRAMADOL. [Concomitant]
     Active Substance: TRAMADOL

REACTIONS (8)
  - Bone density decreased [Unknown]
  - Pain [Not Recovered/Not Resolved]
  - Gait disturbance [Not Recovered/Not Resolved]
  - Anxiety [Unknown]
  - Fracture [Not Recovered/Not Resolved]
  - Osteoporosis [Not Recovered/Not Resolved]
  - Spinal fracture [Not Recovered/Not Resolved]
  - Hip fracture [Not Recovered/Not Resolved]

NARRATIVE: CASE EVENT DATE: 201504
